FAERS Safety Report 18624498 (Version 3)
Quarter: 2021Q1

REPORT INFORMATION
  Report Type: Spontaneous
  Country: US (occurrence: US)
  Receive Date: 20201216
  Receipt Date: 20210310
  Transmission Date: 20210419
  Serious: Yes (Other)
  Sender: FDA-Public Use
  Company Number: US-BAYER-2020-278592

PATIENT
  Age: 28 Year
  Sex: Female
  Weight: 106.58 kg

DRUGS (1)
  1. MIRENA [Suspect]
     Active Substance: LEVONORGESTREL
     Indication: CONTRACEPTION
     Dosage: 20 ?G PER DAY CONTINUOUSLY
     Route: 015
     Dates: start: 201510, end: 20201030

REACTIONS (3)
  - Device breakage [None]
  - Complication of device removal [None]
  - Embedded device [Recovered/Resolved]

NARRATIVE: CASE EVENT DATE: 20201022
